FAERS Safety Report 7153209-0 (Version None)
Quarter: 2010Q4

REPORT INFORMATION
  Report Type: 
  Country: None (occurrence: None)
  Receive Date: 20101130
  Receipt Date: 20101119
  Transmission Date: 20110411
  Serious: Yes (Other)
  Sender: FDA-Public Use
  Company Number: 2010P1002308

PATIENT
  Sex: Female
  Weight: 49.8957 kg

DRUGS (5)
  1. PREDNISONE [Suspect]
     Indication: POLYMYALGIA RHEUMATICA
     Dosage: 65-70 MG;QD;PO
     Route: 048
     Dates: start: 19981119
  2. VITAMIN D [Suspect]
     Dosage: 10,000 UNITS;QW;PO ; 50,000 UNITS;X1;PO ; 10,000-20,000 UNITS;QW;PO
     Route: 048
  3. HORMONE REPLACEMENT THERAPY [Concomitant]
  4. CALCIUM [Concomitant]
  5. PREV MEDS [Concomitant]

REACTIONS (12)
  - ABDOMINAL DISTENSION [None]
  - ADRENAL DISORDER [None]
  - BACK INJURY [None]
  - BONE DISORDER [None]
  - FRACTURE [None]
  - HEADACHE [None]
  - MIGRAINE [None]
  - NODULE [None]
  - PAIN [None]
  - ROAD TRAFFIC ACCIDENT [None]
  - SCOLIOSIS [None]
  - SKIN ATROPHY [None]
